FAERS Safety Report 4582944-3 (Version None)
Quarter: 2005Q1

REPORT INFORMATION
  Report Type: 
  Country: None (occurrence: None)
  Receive Date: 20050127
  Receipt Date: 20040915
  Transmission Date: 20050727
  Serious: No
  Sender: FDA-Public Use
  Company Number: USA040978484

PATIENT
  Sex: Male
  Weight: 23 kg

DRUGS (2)
  1. STRATTERA [Suspect]
     Indication: ATTENTION DEFICIT/HYPERACTIVITY DISORDER
     Dosage: 10 MG DAY
     Dates: start: 20040910
  2. CONCERTA [Concomitant]

REACTIONS (3)
  - FEELING ABNORMAL [None]
  - HEADACHE [None]
  - MIDDLE INSOMNIA [None]
